FAERS Safety Report 12944663 (Version 1)
Quarter: 2016Q4

REPORT INFORMATION
  Report Type: Spontaneous
  Country: CA (occurrence: CA)
  Receive Date: 20161116
  Receipt Date: 20161116
  Transmission Date: 20170207
  Serious: Yes (Other)
  Sender: FDA-Public Use
  Company Number: CA-ROCHE-1853989

PATIENT
  Sex: Male

DRUGS (13)
  1. IRINOTECAN [Concomitant]
     Active Substance: IRINOTECAN
  2. PANITUMUMAB [Concomitant]
     Active Substance: PANITUMUMAB
  3. 5-FU [Concomitant]
     Active Substance: FLUOROURACIL
  4. AVASTIN [Suspect]
     Active Substance: BEVACIZUMAB
     Indication: COLON CANCER
     Route: 042
  5. HYDROMORPHONE [Concomitant]
     Active Substance: HYDROMORPHONE
  6. PANTOPRAZOLE [Concomitant]
     Active Substance: PANTOPRAZOLE SODIUM
  7. GABAPENTIN. [Concomitant]
     Active Substance: GABAPENTIN
  8. RALTITREXED [Concomitant]
     Active Substance: RALTITREXED
  9. FOLINIC ACID [Concomitant]
     Active Substance: LEUCOVORIN
  10. OXALIPLATIN. [Concomitant]
     Active Substance: OXALIPLATIN
  11. DEXAMETHASONE. [Concomitant]
     Active Substance: DEXAMETHASONE
  12. CALCIUM FOLINATE [Concomitant]
     Active Substance: LEUCOVORIN CALCIUM
  13. CAPECITABINE. [Concomitant]
     Active Substance: CAPECITABINE
     Route: 065

REACTIONS (7)
  - Pulmonary embolism [Unknown]
  - Pain [Not Recovered/Not Resolved]
  - Colorectal adenocarcinoma [Unknown]
  - Peripheral swelling [Unknown]
  - Sciatica [Unknown]
  - Haematuria [Unknown]
  - Weight decreased [Unknown]
